FAERS Safety Report 9370644 (Version 1)
Quarter: 2013Q2

REPORT INFORMATION
  Report Type: Spontaneous
  Country: TR (occurrence: TR)
  Receive Date: 20130626
  Receipt Date: 20130626
  Transmission Date: 20140414
  Serious: Yes (Death, Other)
  Sender: FDA-Public Use
  Company Number: TR-BAXTER-2013BAX023183

PATIENT
  Age: 2 Day
  Sex: Female
  Weight: 1.82 kg

DRUGS (4)
  1. DOBUTABAG 4000 MCG/ML [Suspect]
     Indication: RENAL FAILURE ACUTE
  2. PLATELETS [Concomitant]
     Indication: PRODUCT USED FOR UNKNOWN INDICATION
     Route: 065
  3. CRYOPRECIPITATE [Concomitant]
     Indication: PRODUCT USED FOR UNKNOWN INDICATION
     Route: 065
  4. DOPAMINE [Concomitant]
     Indication: PRODUCT USED FOR UNKNOWN INDICATION
     Route: 065

REACTIONS (4)
  - Respiratory distress [Fatal]
  - Cardiopulmonary failure [Fatal]
  - Hypervolaemia [Recovered/Resolved]
  - Pulmonary oedema [Recovered/Resolved]
